FAERS Safety Report 14481867 (Version 1)
Quarter: 2018Q1

REPORT INFORMATION
  Report Type: Spontaneous
  Country: DE (occurrence: DE)
  Receive Date: 20180202
  Receipt Date: 20180202
  Transmission Date: 20180509
  Serious: Yes (Other)
  Sender: FDA-Public Use
  Company Number: DE-GLAXOSMITHKLINE-DE2018013528

PATIENT
  Age: 76 Year
  Sex: Female

DRUGS (2)
  1. ACICLOVIR [Suspect]
     Active Substance: ACYCLOVIR
     Indication: HERPES SIMPLEX ENCEPHALITIS
     Dosage: 2250 MILLIGRAM DAILY; 3X750MG/DAY FOR 32 DAYS FOR HERPES SIMPLEX ENCEPHALITIS (FIRST ADMINISTERED FO
     Route: 042
  2. ACICLOVIR [Suspect]
     Active Substance: ACYCLOVIR
     Dosage: INITIAL DOSE NOT STATED; ADMINISTERED FOR 21 DAYS
     Route: 042

REACTIONS (2)
  - Treatment failure [Unknown]
  - Pathogen resistance [Unknown]
